FAERS Safety Report 24765235 (Version 3)
Quarter: 2025Q1

REPORT INFORMATION
  Report Type: Report from Study
  Country: US (occurrence: US)
  Receive Date: 20241223
  Receipt Date: 20250319
  Transmission Date: 20250408
  Serious: Yes (Other)
  Sender: ABBVIE
  Company Number: US-ABBVIE-6054700

PATIENT
  Age: 57 Year
  Sex: Female
  Weight: 56.69 kg

DRUGS (2)
  1. HUMIRA [Suspect]
     Active Substance: ADALIMUMAB
     Indication: Crohn^s disease
     Dosage: FORM STRENGTH : 40 MILLIGRAM
     Route: 058
     Dates: start: 20201220, end: 20240814
  2. HUMIRA [Suspect]
     Active Substance: ADALIMUMAB
     Indication: Colitis ulcerative

REACTIONS (3)
  - Colitis ulcerative [Recovering/Resolving]
  - Crohn^s disease [Not Recovered/Not Resolved]
  - Stool analysis abnormal [Recovered/Resolved]

NARRATIVE: CASE EVENT DATE: 20241110
